APPROVED DRUG PRODUCT: CAPOTEN
Active Ingredient: CAPTOPRIL
Strength: 12.5MG **Federal Register determination that product was not discontinued or withdrawn for safety or effectiveness reasons**
Dosage Form/Route: TABLET;ORAL
Application: N018343 | Product #005
Applicant: AARXION ANDA HOLDING LLC
Approved: Jan 17, 1985 | RLD: Yes | RS: No | Type: DISCN